FAERS Safety Report 15020601 (Version 1)
Quarter: 2018Q2

REPORT INFORMATION
  Report Type: Spontaneous
  Country: US (occurrence: US)
  Receive Date: 20180618
  Receipt Date: 20180618
  Transmission Date: 20180711
  Serious: Yes (Other)
  Sender: FDA-Public Use
  Company Number: US-MALLINCKRODT-T201704222

PATIENT
  Sex: Female

DRUGS (1)
  1. HYDROCODONE/ACETAMINOPHEN [Suspect]
     Active Substance: ACETAMINOPHEN\HYDROCODONE
     Indication: PAIN
     Dosage: 10/325
     Route: 065

REACTIONS (5)
  - Drug ineffective [Unknown]
  - Weight decreased [Unknown]
  - Malaise [Unknown]
  - Fatigue [Unknown]
  - Vomiting [Unknown]
